FAERS Safety Report 12226005 (Version 1)
Quarter: 2016Q1

REPORT INFORMATION
  Report Type: Spontaneous
  Country: US (occurrence: US)
  Receive Date: 20160331
  Receipt Date: 20160331
  Transmission Date: 20160526
  Serious: No
  Sender: FDA-Public Use
  Company Number: US-BAUSCH-BL-2016-001207

PATIENT
  Age: 37 Year
  Sex: Female
  Weight: 57.2 kg

DRUGS (1)
  1. RENOVA [Suspect]
     Active Substance: TRETINOIN
     Indication: SKIN IRRITATION
     Route: 061
     Dates: start: 201512, end: 201601

REACTIONS (4)
  - Erythema [Recovering/Resolving]
  - Off label use [Unknown]
  - Skin exfoliation [Recovering/Resolving]
  - Skin hyperpigmentation [Recovering/Resolving]

NARRATIVE: CASE EVENT DATE: 201601
